FAERS Safety Report 5924988-2 (Version None)
Quarter: 2008Q3

REPORT INFORMATION
  Report Type: 
  Country: None (occurrence: None)
  Receive Date: 20080909
  Receipt Date: 20080509
  Transmission Date: 20090109
  Serious: Yes (Hospitalization, Other)
  Sender: FDA-Public Use
  Company Number: 163-20785-08040552

PATIENT
  Age: 71 Year
  Sex: Male

DRUGS (3)
  1. THALOMID [Suspect]
     Indication: B-CELL LYMPHOMA
     Dosage: 100 MG, 1 IN 1 D, ORAL ; 100 MG, 2 IN 1 D, ORAL ; 200 MG, 1 IN 1 D, ORAL
     Route: 048
     Dates: start: 20070301, end: 20071201
  2. THALOMID [Suspect]
     Indication: B-CELL LYMPHOMA
     Dosage: 100 MG, 1 IN 1 D, ORAL ; 100 MG, 2 IN 1 D, ORAL ; 200 MG, 1 IN 1 D, ORAL
     Route: 048
     Dates: start: 20070101
  3. THALOMID [Suspect]
     Indication: B-CELL LYMPHOMA
     Dosage: 100 MG, 1 IN 1 D, ORAL ; 100 MG, 2 IN 1 D, ORAL ; 200 MG, 1 IN 1 D, ORAL
     Route: 048
     Dates: start: 20080121

REACTIONS (3)
  - DEAFNESS [None]
  - FATIGUE [None]
  - THROMBOSIS [None]
